FAERS Safety Report 22270837 (Version 1)
Quarter: 2023Q2

REPORT INFORMATION
  Report Type: Spontaneous
  Country: US (occurrence: None)
  Receive Date: 20230428
  Receipt Date: 20230428
  Transmission Date: 20230722
  Serious: Yes (Death)
  Sender: FDA-Public Use
  Company Number: None

PATIENT
  Age: 82 Year
  Sex: Male

DRUGS (8)
  1. NOURIANZ [Suspect]
     Active Substance: ISTRADEFYLLINE
     Indication: Parkinson^s disease
     Dosage: FREQUENCY : DAILY;?
     Route: 048
     Dates: start: 20210331, end: 20230217
  2. ASPIRIN  EC LOW [Concomitant]
  3. CALCIUM [Concomitant]
  4. CARDIDOPA/LEVODOPA [Concomitant]
  5. HYDRPCHLOROTHIAZIDE [Concomitant]
  6. LOSARTAN [Concomitant]
     Active Substance: LOSARTAN
  7. MODAFINIL [Concomitant]
  8. DIETARY SUPPLEMENT\RESVERATROL [Concomitant]
     Active Substance: DIETARY SUPPLEMENT\RESVERATROL

REACTIONS (1)
  - Death [None]

NARRATIVE: CASE EVENT DATE: 20230217
